FAERS Safety Report 5284471-7 (Version None)
Quarter: 2007Q1

REPORT INFORMATION
  Report Type: 
  Country: None (occurrence: None)
  Receive Date: 20070328
  Receipt Date: 20070314
  Transmission Date: 20070707
  Serious: Yes (Other)
  Sender: FDA-Public Use
  Company Number: 2007BL000823

PATIENT
  Age: 62 Year
  Sex: Female

DRUGS (8)
  1. DEXAMETHASONE [Suspect]
     Indication: DRUG USE FOR UNKNOWN INDICATION
  2. FENTANYL [Suspect]
     Indication: DRUG USE FOR UNKNOWN INDICATION
  3. ONDANSETRON HCL [Suspect]
     Indication: DRUG USE FOR UNKNOWN INDICATION
  4. PROPOFOL [Suspect]
     Indication: DRUG USE FOR UNKNOWN INDICATION
  5. SUXAMETHONIUM (SUXAMETHONIUM) [Suspect]
     Indication: MUSCLE RELAXANT THERAPY
     Dosage: 100 MILLIGRAMS; UNKNOWN; INTRAVENOUS
     Route: 042
  6. FUROSEMIDE [Concomitant]
  7. SIMVASTATIN [Concomitant]
  8. VENTOLIN [Concomitant]

REACTIONS (1)
  - CARDIAC ARREST [None]
